FAERS Safety Report 7049285-6 (Version None)
Quarter: 2010Q4

REPORT INFORMATION
  Report Type: 
  Country: None (occurrence: None)
  Receive Date: 20101018
  Receipt Date: 20101007
  Transmission Date: 20110411
  Serious: Yes (Hospitalization)
  Sender: FDA-Public Use
  Company Number: JP-JNJFOC-20100303841

PATIENT
  Sex: Female
  Weight: 60 kg

DRUGS (13)
  1. DOXIL [Suspect]
     Indication: OVARIAN CANCER RECURRENT
     Route: 042
  2. DOXIL [Suspect]
     Route: 042
  3. DOGMATYL [Concomitant]
     Route: 048
  4. ATARAX [Concomitant]
     Route: 048
  5. RINDERON [Concomitant]
     Route: 048
  6. TAKEPRON [Concomitant]
     Route: 048
  7. OLMETEC [Concomitant]
     Route: 048
  8. ATELEC [Concomitant]
     Route: 048
  9. LIPITOR [Concomitant]
     Route: 048
  10. MAGNESIUM OXIDE [Concomitant]
     Route: 048
  11. GOREISAN [Concomitant]
     Route: 048
  12. METOCLOPRAMIDE [Concomitant]
     Route: 048
  13. CALONAL [Concomitant]
     Route: 048

REACTIONS (1)
  - INTERSTITIAL LUNG DISEASE [None]
